FAERS Safety Report 7058170-5 (Version None)
Quarter: 2010Q4

REPORT INFORMATION
  Report Type: 
  Country: None (occurrence: None)
  Receive Date: 20101022
  Receipt Date: 20101008
  Transmission Date: 20110411
  Serious: Yes (Disabling, Other)
  Sender: FDA-Public Use
  Company Number: GB-WATSON-2010-10750

PATIENT
  Age: 50 Year
  Sex: Female

DRUGS (15)
  1. PRAVASTATIN SODIUM [Suspect]
     Indication: PRODUCT USED FOR UNKNOWN INDICATION
     Dosage: 10 MG, UNKNOWN
  2. SIMVASTATIN [Suspect]
     Indication: ENDOSCOPY
     Dosage: UNK
     Dates: start: 20030101
  3. SIMVASTATIN [Suspect]
     Indication: FATIGUE
  4. SIMVASTATIN [Suspect]
     Indication: MEMORY IMPAIRMENT
  5. SIMVASTATIN [Suspect]
     Indication: MYALGIA
  6. SIMVASTATIN [Suspect]
     Indication: PAIN IN EXTREMITY
  7. LIPITOR [Suspect]
     Indication: HYPERCHOLESTEROLAEMIA
     Dosage: 40 MG, UNKNOWN
     Dates: start: 20030310
  8. LIPITOR [Suspect]
     Dosage: 10 MG, UNKNOWN
     Dates: start: 19981113, end: 20061128
  9. EVOREL CONTI [Concomitant]
     Indication: PANIC ATTACK
     Dosage: 1 DF, BID
  10. EVOREL CONTI [Concomitant]
     Indication: NAUSEA
     Dosage: 2/WK
  11. EVOREL CONTI [Concomitant]
     Indication: FEELING HOT
  12. EVOREL CONTI [Concomitant]
     Indication: CHEST PAIN
  13. EVOREL CONTI [Concomitant]
     Indication: ANXIETY
  14. LANSOPRAZOLE [Concomitant]
     Indication: DYSPEPSIA
     Dosage: UNK
  15. CRESTOR [Concomitant]
     Indication: MYALGIA
     Dosage: UNK

REACTIONS (38)
  - ABDOMINAL PAIN UPPER [None]
  - ANGIOEDEMA [None]
  - ANXIETY [None]
  - ARTHRALGIA [None]
  - ARTHRITIS [None]
  - ASTHENIA [None]
  - BLEPHARITIS [None]
  - BLOOD CHOLESTEROL INCREASED [None]
  - CONDITION AGGRAVATED [None]
  - CONJUNCTIVITIS [None]
  - DEPRESSION [None]
  - DRUG INEFFECTIVE [None]
  - DRY MOUTH [None]
  - DYSGEUSIA [None]
  - DYSPEPSIA [None]
  - FATIGUE [None]
  - GASTRIC ULCER [None]
  - GASTROENTERITIS [None]
  - HYPERSENSITIVITY [None]
  - INFLUENZA LIKE ILLNESS [None]
  - IRRITABLE BOWEL SYNDROME [None]
  - JOINT INJURY [None]
  - MEMORY IMPAIRMENT [None]
  - MENOPAUSAL SYMPTOMS [None]
  - MUSCLE ATROPHY [None]
  - MUSCLE INJURY [None]
  - MUSCULOSKELETAL PAIN [None]
  - MYALGIA [None]
  - PAIN IN EXTREMITY [None]
  - PHOTOSENSITIVITY REACTION [None]
  - POST VIRAL FATIGUE SYNDROME [None]
  - RESTLESS LEGS SYNDROME [None]
  - ROAD TRAFFIC ACCIDENT [None]
  - SALIVARY HYPERSECRETION [None]
  - UNEVALUABLE EVENT [None]
  - UPPER RESPIRATORY TRACT INFECTION [None]
  - URTICARIA [None]
  - VIRAL INFECTION [None]
